FAERS Safety Report 4675224-9 (Version None)
Quarter: 2005Q2

REPORT INFORMATION
  Report Type: 
  Country: None (occurrence: None)
  Receive Date: 20050526
  Receipt Date: 20050519
  Transmission Date: 20051028
  Serious: Yes (Death)
  Sender: FDA-Public Use
  Company Number: B0381821A

PATIENT
  Sex: 0

DRUGS (5)
  1. TRIZIVIR [Suspect]
     Indication: HIV INFECTION
  2. NEVIRAPINE [Suspect]
     Indication: HIV INFECTION
  3. RETROVIR [Suspect]
     Indication: HIV INFECTION
  4. SPIVIR (LAMIVUDINE) [Suspect]
     Indication: HIV INFECTION
  5. ZIAGEN [Suspect]
     Indication: HIV INFECTION

REACTIONS (2)
  - BRAIN ABSCESS [None]
  - RASH [None]
